FAERS Safety Report 9762230 (Version 1)
Quarter: 2013Q4

REPORT INFORMATION
  Report Type: Spontaneous
  Country: US (occurrence: US)
  Receive Date: 20131216
  Receipt Date: 20131216
  Transmission Date: 20140711
  Serious: No
  Sender: FDA-Public Use
  Company Number: US-BIOGENIDEC-2013BI104323

PATIENT
  Age: 72 Year
  Sex: Male

DRUGS (11)
  1. TECFIDERA [Suspect]
     Indication: MULTIPLE SCLEROSIS
     Route: 048
     Dates: start: 20131016
  2. ADVAIR HFA [Concomitant]
  3. ALBUTEROL SULFATE [Concomitant]
  4. AMPYRA [Concomitant]
  5. BUPROPION HCL XL [Concomitant]
  6. FISH OIL [Concomitant]
  7. LISINOPRIL [Concomitant]
  8. SERTRALINE HCL [Concomitant]
  9. SPIRIVA HANDIHALER [Concomitant]
  10. ZOLOFT [Concomitant]
  11. VESICARE [Concomitant]

REACTIONS (3)
  - Flushing [Not Recovered/Not Resolved]
  - Nausea [Not Recovered/Not Resolved]
  - Abdominal discomfort [Unknown]
